FAERS Safety Report 7229811-4 (Version None)
Quarter: 2011Q1

REPORT INFORMATION
  Report Type: 
  Country: None (occurrence: None)
  Receive Date: 20110117
  Receipt Date: 20110107
  Transmission Date: 20110831
  Serious: Yes (Hospitalization)
  Sender: FDA-Public Use
  Company Number: US-PURDUE-USA-2011-0061958

PATIENT
  Age: 49 Year
  Sex: Female

DRUGS (2)
  1. OXYCODONE HCL [Suspect]
     Indication: BACK PAIN
  2. OXYCODONE HCL [Suspect]
     Indication: BONE PAIN

REACTIONS (1)
  - STAB WOUND [None]
